FAERS Safety Report 17354796 (Version 1)
Quarter: 2020Q1

REPORT INFORMATION
  Report Type: Spontaneous
  Country: US (occurrence: US)
  Receive Date: 20200116
  Receipt Date: 20200116
  Transmission Date: 20200409
  Serious: Yes (Other)
  Sender: FDA-Public Use
  Company Number: None

PATIENT
  Age: 69 Year
  Sex: Male
  Weight: 79.83 kg

DRUGS (7)
  1. ASPIRIN. [Concomitant]
     Active Substance: ASPIRIN
  2. DICLOFENAC [Concomitant]
     Active Substance: DICLOFENAC
  3. REPATHA [Suspect]
     Active Substance: EVOLOCUMAB
     Dosage: ?          OTHER FREQUENCY:TWICE A MONTH ;?
     Route: 058
     Dates: start: 20191119, end: 20200116
  4. SILDENAFIL. [Concomitant]
     Active Substance: SILDENAFIL
  5. LORATIDINE [Concomitant]
     Active Substance: LORATADINE
  6. NICOTINE TRANSDERMAL SYSTEM [Concomitant]
     Active Substance: NICOTINE
  7. VANICREAM [Concomitant]
     Active Substance: TITANIUM DIOXIDE\ZINC OXIDE

REACTIONS (7)
  - Chills [None]
  - Vomiting [None]
  - Diarrhoea [None]
  - Asthenia [None]
  - Nausea [None]
  - Myalgia [None]
  - Abdominal pain [None]

NARRATIVE: CASE EVENT DATE: 20191119
